FAERS Safety Report 4435911-4 (Version None)
Quarter: 2004Q3

REPORT INFORMATION
  Report Type: 
  Country: None (occurrence: None)
  Receive Date: 20040726
  Receipt Date: 20040428
  Transmission Date: 20050211
  Serious: No
  Sender: FDA-Public Use
  Company Number: USA040360633

PATIENT
  Age: 65 Year
  Sex: Female
  Weight: 50 kg

DRUGS (11)
  1. FORTEO [Suspect]
     Indication: FRACTURE
     Dosage: 20 UG DAY
     Dates: start: 20040201
  2. FORTEO [Suspect]
     Indication: OSTEOPOROSIS
     Dosage: 20 UG DAY
     Dates: start: 20040201
  3. AREDIA (AMIDRONATE DISODIUM) [Concomitant]
  4. MULTI-VITAMINS [Concomitant]
  5. CALCIUM [Concomitant]
  6. VITAMIN K TAB [Concomitant]
  7. PREVACID [Concomitant]
  8. ATENOLOL [Concomitant]
  9. VALSARTAN [Concomitant]
  10. CRESTOR [Concomitant]
  11. ZOLOFT [Concomitant]

REACTIONS (10)
  - ARTHRALGIA [None]
  - BALANCE DISORDER [None]
  - CONTUSION [None]
  - DIARRHOEA [None]
  - DIZZINESS [None]
  - FALL [None]
  - INSOMNIA [None]
  - JOINT SPRAIN [None]
  - MUSCLE CRAMP [None]
  - PAIN IN EXTREMITY [None]
